FAERS Safety Report 5227456-9 (Version None)
Quarter: 2007Q1

REPORT INFORMATION
  Report Type: 
  Country: None (occurrence: None)
  Receive Date: 20061201
  Receipt Date: 20061019
  Transmission Date: 20070707
  Serious: No
  Sender: FDA-Public Use
  Company Number: US200610003364

PATIENT
  Age: 55 Year
  Sex: Female

DRUGS (13)
  1. CYMBALTA [Suspect]
     Indication: DEPRESSION
     Dosage: 30 MG, EACH MORNING
     Dates: start: 20061008
  2. WELLBUTRIN [Concomitant]
  3. NIACIN [Concomitant]
  4. PROTONIX [Concomitant]
  5. COUMADIN [Concomitant]
  6. K-DUR 10 [Concomitant]
  7. LIPITOR [Concomitant]
  8. RESTORIL [Concomitant]
  9. GLUCOSAMINE W/CHONDROITIN (CHONDROITIN SULFATE, GLUCOSAMINE) [Concomitant]
  10. CALCIUM (CALCIUM) [Concomitant]
  11. MAGNESIUM (MAGNESIUM) [Concomitant]
  12. FISH OIL (FISH OIL) [Concomitant]
  13. MULTIVITAMINS (ASCORBIC ACID, ERGOCALCIFEROL, FOLIC ACID, NICOTINAMIDE [Concomitant]

REACTIONS (6)
  - DECREASED APPETITE [None]
  - GENERALISED ERYTHEMA [None]
  - HEART RATE INCREASED [None]
  - HEAT RASH [None]
  - RASH [None]
  - SKIN DISCOLOURATION [None]
